FAERS Safety Report 5889454-1 (Version None)
Quarter: 2008Q3

REPORT INFORMATION
  Report Type: 
  Country: None (occurrence: None)
  Receive Date: 20080915
  Receipt Date: 20080902
  Transmission Date: 20090109
  Serious: Yes (Hospitalization)
  Sender: FDA-Public Use
  Company Number: 200814003

PATIENT
  Age: 46 Year
  Sex: Female
  Weight: 69.4003 kg

DRUGS (3)
  1. VIVAGLOBIN [Suspect]
     Indication: BLOOD IMMUNOGLOBULIN G DECREASED
     Dosage: 31.25 ML Q1W SC; SC; SC; SC
     Route: 058
     Dates: start: 20080801, end: 20080801
  2. VIVAGLOBIN [Suspect]
  3. VIVAGLOBIN [Suspect]

REACTIONS (3)
  - SKIN EXFOLIATION [None]
  - SUBCUTANEOUS ABSCESS [None]
  - VASCULITIS [None]
